FAERS Safety Report 8091464-3 (Version None)
Quarter: 2012Q1

REPORT INFORMATION
  Report Type: 
  Country: None (occurrence: None)
  Receive Date: 20120129
  Receipt Date: 20111214
  Transmission Date: 20120608
  Serious: No
  Sender: FDA-Public Use
  Company Number: US-ABBOTT-09P-163-0601946-00

PATIENT
  Sex: Female
  Weight: 62.198 kg

DRUGS (4)
  1. HUMIRA [Suspect]
     Dates: start: 20070612
  2. FLU MIST [Concomitant]
     Indication: ANTIVIRAL PROPHYLAXIS
     Dates: start: 20091001, end: 20091001
  3. HUMIRA [Suspect]
     Dates: start: 20080201
  4. HUMIRA [Suspect]
     Indication: RHEUMATOID ARTHRITIS
     Dates: end: 20070403

REACTIONS (7)
  - OEDEMA PERIPHERAL [None]
  - PRURITUS [None]
  - GESTATIONAL HYPERTENSION [None]
  - GESTATIONAL DIABETES [None]
  - BACTERIAL TOXAEMIA [None]
  - JAUNDICE [None]
  - URTICARIA [None]
